FAERS Safety Report 5629921-9 (Version None)
Quarter: 2008Q1

REPORT INFORMATION
  Report Type: 
  Country: None (occurrence: None)
  Receive Date: 20080213
  Receipt Date: 20080131
  Transmission Date: 20080703
  Serious: Yes (Hospitalization)
  Sender: FDA-Public Use
  Company Number: 000050

PATIENT
  Age: 70 Year
  Sex: Male

DRUGS (1)
  1. PLETAL [Suspect]
     Indication: CEREBRAL INFARCTION
     Dosage: BID ORAL
     Route: 048

REACTIONS (3)
  - CARDIAC FAILURE [None]
  - HEART RATE INCREASED [None]
  - MALAISE [None]
